FAERS Safety Report 4591638-X (Version None)
Quarter: 2005Q1

REPORT INFORMATION
  Report Type: 
  Country: None (occurrence: None)
  Receive Date: 20050218
  Receipt Date: 20050209
  Transmission Date: 20050727
  Serious: Yes (Hospitalization, Other)
  Sender: FDA-Public Use
  Company Number: 2001076324US

PATIENT
  Age: 82 Year
  Sex: Female

DRUGS (14)
  1. DETROL LA [Suspect]
     Indication: INCONTINENCE
     Dosage: (BID), ORAL
     Route: 048
     Dates: start: 20030101
  2. DETROL LA [Suspect]
     Indication: INCONTINENCE
     Dosage: (QD), ORAL
     Route: 048
     Dates: start: 20030101
  3. LIPITOR [Suspect]
     Indication: BLOOD CHOLESTEROL
     Dosage: ORAL
     Route: 048
     Dates: start: 20000101
  4. ALENDRONATE SODIUM [Suspect]
     Indication: OSTEOPOROSIS
  5. ISOSORBIDE (ISOSORBIDE) [Concomitant]
  6. CARVEDILOL [Concomitant]
  7. PAROXETINE HCL [Concomitant]
  8. ASPIRIN [Concomitant]
  9. ASCORBIC ACID [Concomitant]
  10. VITAMINS (VITAMINS) [Concomitant]
  11. CALCIUM (CALCIUM) [Concomitant]
  12. ESOMEPRAZOLE (ESOMEPRAZOLE) [Concomitant]
  13. LOSARTAN POTASSIUM [Concomitant]
  14. HYDROCHLOROTHIAZIDE [Concomitant]

REACTIONS (9)
  - CARDIAC FAILURE CONGESTIVE [None]
  - CORONARY ANGIOPLASTY [None]
  - DRUG INEFFECTIVE [None]
  - FALL [None]
  - IMPLANT SITE INFECTION [None]
  - OSTEOPOROSIS [None]
  - SPINAL COMPRESSION FRACTURE [None]
  - THERAPEUTIC RESPONSE DECREASED [None]
  - WRIST FRACTURE [None]
